FAERS Safety Report 4888396-8 (Version None)
Quarter: 2006Q1

REPORT INFORMATION
  Report Type: 
  Country: None (occurrence: None)
  Receive Date: 20060119
  Receipt Date: 20060119
  Transmission Date: 20060701
  Serious: Yes (Hospitalization)
  Sender: FDA-Public Use
  Company Number: None

PATIENT
  Age: 58 Year
  Sex: Male
  Weight: 63.05 kg

DRUGS (1)
  1. CYCLOPHOSPHAMIDE [Suspect]
     Indication: MULTIPLE MYELOMA
     Dosage: 5.22 GRAMS IV
     Route: 042
     Dates: start: 20051007

REACTIONS (4)
  - ANOREXIA [None]
  - BODY TEMPERATURE INCREASED [None]
  - CHILLS [None]
  - FEBRILE NEUTROPENIA [None]
